FAERS Safety Report 21538202 (Version 1)
Quarter: 2022Q4

REPORT INFORMATION
  Report Type: Report from Study
  Country: NL (occurrence: None)
  Receive Date: 20221102
  Receipt Date: 20221102
  Transmission Date: 20230112
  Serious: Yes (Hospitalization)
  Sender: FDA-Public Use
  Company Number: NL-MDD US Operations-MDD202210-003430

PATIENT
  Age: 78 Year
  Sex: Male

DRUGS (12)
  1. APOMORPHINE HYDROCHLORIDE [Suspect]
     Active Substance: APOMORPHINE HYDROCHLORIDE
     Indication: Parkinson^s disease
     Dosage: NOT PROVIDED
     Dates: start: 201009, end: 20130528
  2. APOMORPHINE HYDROCHLORIDE [Suspect]
     Active Substance: APOMORPHINE HYDROCHLORIDE
     Dosage: 1.4ML/HR, 7MG/HR DURING 16HR, BOLUS; 0.4ML (=2MG) 3-4XD.
     Route: 058
     Dates: start: 201703
  3. AMANTADINE [Concomitant]
     Active Substance: AMANTADINE
  4. GLICLAZIDE [Concomitant]
     Active Substance: GLICLAZIDE
  5. HYDROCORTISONE [Concomitant]
     Active Substance: HYDROCORTISONE
     Dosage: 10MG/G
  6. CARBIDOPA\LEVODOPA [Concomitant]
     Active Substance: CARBIDOPA\LEVODOPA
     Dosage: EACH DF CONTAINS 100/25MG,
  7. CARBIDOPA\LEVODOPA [Concomitant]
     Active Substance: CARBIDOPA\LEVODOPA
     Dosage: 100/25MG, 1XD 1T
  8. METFORMIN HYDROCHLORIDE [Concomitant]
     Active Substance: METFORMIN HYDROCHLORIDE
  9. PRAMIPEXOLE [Concomitant]
     Active Substance: PRAMIPEXOLE
     Dosage: MGA 0.375MG, (0,26MG BASE)
  10. PRAMIPEXOLE [Concomitant]
     Active Substance: PRAMIPEXOLE
     Dosage: MGA 1.5MG (1,05MG BASE) 1XD 1T
  11. SOLIFENACIN [Concomitant]
     Active Substance: SOLIFENACIN
  12. RIVASTIGMINE [Concomitant]
     Active Substance: RIVASTIGMINE
     Dosage: 13.3MG/24HR, (EX/1A/SDZ/TE)

REACTIONS (1)
  - Injection site abscess [Recovered/Resolved]

NARRATIVE: CASE EVENT DATE: 20221004
